FAERS Safety Report 4429768-5 (Version None)
Quarter: 2004Q3

REPORT INFORMATION
  Report Type: 
  Country: None (occurrence: None)
  Receive Date: 20040817
  Receipt Date: 20040804
  Transmission Date: 20050211
  Serious: Yes (Hospitalization)
  Sender: FDA-Public Use
  Company Number: S04-USA-04854-01

PATIENT
  Age: 64 Year
  Sex: Male

DRUGS (4)
  1. TIAZAC [Suspect]
     Indication: HYPERTENSION
     Dosage: 240 MG QD PO
     Route: 048
     Dates: start: 20040704, end: 20040804
  2. ATENOLOL [Concomitant]
  3. PAXIL [Concomitant]
  4. GLUCOPHAGE [Concomitant]

REACTIONS (2)
  - BRADYCARDIA [None]
  - ELECTROCARDIOGRAM QT PROLONGED [None]
